FAERS Safety Report 5196211-0 (Version None)
Quarter: 2006Q4

REPORT INFORMATION
  Report Type: 
  Country: None (occurrence: None)
  Receive Date: 20061221
  Receipt Date: 20061214
  Transmission Date: 20070319
  Serious: Yes (Hospitalization)
  Sender: FDA-Public Use
  Company Number: 2006AL003952

PATIENT
  Age: 30 Year
  Sex: Female

DRUGS (5)
  1. ACYCLOVIR [Suspect]
     Indication: HERPES ZOSTER
     Dosage: 200 MG;QD;PO
     Route: 048
     Dates: start: 20060801, end: 20060805
  2. AMISULPRIDE [Concomitant]
  3. PIRENZEPINE [Concomitant]
  4. TOLTERODINE [Concomitant]
  5. VALPROIC ACID [Concomitant]

REACTIONS (7)
  - HALLUCINATION [None]
  - HALLUCINATIONS, MIXED [None]
  - LETHARGY [None]
  - MENTAL IMPAIRMENT [None]
  - MOOD ALTERED [None]
  - OVERWEIGHT [None]
  - STRESS [None]
